FAERS Safety Report 4579699-5 (Version None)
Quarter: 2005Q1

REPORT INFORMATION
  Report Type: 
  Country: None (occurrence: None)
  Receive Date: 20050210
  Receipt Date: 20050202
  Transmission Date: 20050727
  Serious: Yes (Hospitalization)
  Sender: FDA-Public Use
  Company Number: 212184

PATIENT
  Sex: Male

DRUGS (1)
  1. XOLAIR [Suspect]
     Dosage: 375 MG, Q2W
     Dates: start: 20040101

REACTIONS (2)
  - PALLOR [None]
  - PNEUMONIA [None]
